FAERS Safety Report 18501738 (Version 4)
Quarter: 2021Q2

REPORT INFORMATION
  Report Type: Report from Study
  Country: US (occurrence: US)
  Receive Date: 20201113
  Receipt Date: 20210423
  Transmission Date: 20210717
  Serious: Yes (Other)
  Sender: FDA-Public Use
  Company Number: US-MALLINCKRODT-T202002111

PATIENT
  Age: 61 Year
  Sex: Female

DRUGS (5)
  1. REPOSITORY CORTICOTROPIN INJECTION [Suspect]
     Active Substance: CORTICOTROPIN
     Dosage: 20 UNITS, ONE TIME A WEEK
     Route: 065
     Dates: start: 2020, end: 2021
  2. REPOSITORY CORTICOTROPIN INJECTION [Suspect]
     Active Substance: CORTICOTROPIN
     Dosage: 30 UNITS, UNK
     Route: 065
  3. REPOSITORY CORTICOTROPIN INJECTION [Suspect]
     Active Substance: CORTICOTROPIN
     Dosage: 20 UNITS, UNK
     Route: 065
     Dates: start: 20201028, end: 2020
  4. REPOSITORY CORTICOTROPIN INJECTION [Suspect]
     Active Substance: CORTICOTROPIN
     Indication: NEPHROTIC SYNDROME
     Dosage: 20 UNITS, 3 TIMES WEEKLY
     Route: 058
     Dates: start: 201706
  5. REPOSITORY CORTICOTROPIN INJECTION [Suspect]
     Active Substance: CORTICOTROPIN
     Dosage: 20 UNITS, 2 TIMES WEEKLY
     Route: 058
     Dates: end: 2020

REACTIONS (16)
  - Hepatomegaly [Unknown]
  - Swelling [Not Recovered/Not Resolved]
  - SARS-CoV-2 antibody test positive [Unknown]
  - Confusional state [Not Recovered/Not Resolved]
  - Injection site bruising [Recovered/Resolved]
  - Fatigue [Not Recovered/Not Resolved]
  - Memory impairment [Not Recovered/Not Resolved]
  - Urine abnormality [Unknown]
  - Abdominal pain upper [Unknown]
  - Fibromyalgia [Not Recovered/Not Resolved]
  - Pulmonary mass [Not Recovered/Not Resolved]
  - Arteriovenous fistula operation [Unknown]
  - Diabetes mellitus inadequate control [Recovered/Resolved]
  - Migraine [Not Recovered/Not Resolved]
  - Hypertension [Not Recovered/Not Resolved]
  - Bronchitis [Recovered/Resolved]

NARRATIVE: CASE EVENT DATE: 2020
